FAERS Safety Report 9183056 (Version 1)
Quarter: 2013Q1

REPORT INFORMATION
  Report Type: Spontaneous
  Country: US (occurrence: US)
  Receive Date: 20130322
  Receipt Date: 20130322
  Transmission Date: 20140127
  Serious: No
  Sender: FDA-Public Use
  Company Number: US-BRISTOL-MYERS SQUIBB COMPANY-16863136

PATIENT
  Age: 81 Year
  Sex: Male
  Weight: 63.49 kg

DRUGS (2)
  1. ERBITUX [Suspect]
     Indication: THROAT CANCER
     Dosage: LAST DOSE 11MAY2012 ?NO OF INFU:5
     Route: 042
     Dates: start: 20120415
  2. BENADRYL [Concomitant]

REACTIONS (6)
  - Nausea [Recovering/Resolving]
  - Rash [Recovering/Resolving]
  - Stomatitis [Recovering/Resolving]
  - Aptyalism [Unknown]
  - Hypogeusia [Unknown]
  - Radiation skin injury [Unknown]
